FAERS Safety Report 6134035-8 (Version None)
Quarter: 2009Q1

REPORT INFORMATION
  Report Type: 
  Country: None (occurrence: None)
  Receive Date: 20090326
  Receipt Date: 20090318
  Transmission Date: 20090719
  Serious: Yes (Other)
  Sender: FDA-Public Use
  Company Number: US-ELI_LILLY_AND_COMPANY-US200903004645

PATIENT
  Sex: Female

DRUGS (2)
  1. STRATTERA [Suspect]
     Indication: ANXIETY
     Dosage: 10 MG, DAILY (1/D)
     Route: 065
     Dates: start: 20090310
  2. PREVACID [Concomitant]
     Dosage: UNK, UNKNOWN
     Route: 065

REACTIONS (11)
  - ABNORMAL BEHAVIOUR [None]
  - ANXIETY [None]
  - CRYING [None]
  - DEPRESSED MOOD [None]
  - DISTURBANCE IN ATTENTION [None]
  - FEAR [None]
  - INSOMNIA [None]
  - MIDDLE INSOMNIA [None]
  - PARANOIA [None]
  - SELF ESTEEM DECREASED [None]
  - SELF INJURIOUS BEHAVIOUR [None]
